FAERS Safety Report 5829606-X (Version None)
Quarter: 2008Q3

REPORT INFORMATION
  Report Type: 
  Country: None (occurrence: None)
  Receive Date: 20080731
  Receipt Date: 20080728
  Transmission Date: 20090109
  Serious: Yes (Life-Threatening, Hospitalization)
  Sender: FDA-Public Use
  Company Number: SE-PFIZER INC-2008061077

PATIENT
  Sex: Female

DRUGS (3)
  1. SALAZOPYRIN EN [Suspect]
     Indication: MUSCULOSKELETAL PAIN
     Route: 048
     Dates: start: 20080501, end: 20080717
  2. SALAZOPYRIN EN [Suspect]
     Indication: ARTHRITIS
  3. KETOPROFEN [Concomitant]
     Route: 048

REACTIONS (9)
  - ABDOMINAL PAIN UPPER [None]
  - HEPATOMEGALY [None]
  - HYPOTENSION [None]
  - LEUKOPENIA [None]
  - MALAISE [None]
  - OROPHARYNGEAL PAIN [None]
  - PYREXIA [None]
  - SPLENOMEGALY [None]
  - VOMITING [None]
